FAERS Safety Report 4446545-X (Version None)
Quarter: 2004Q3

REPORT INFORMATION
  Report Type: 
  Country: None (occurrence: None)
  Receive Date: 20040908
  Receipt Date: 20040825
  Transmission Date: 20050211
  Serious: Yes (Hospitalization)
  Sender: FDA-Public Use
  Company Number: 2004227679JP

PATIENT
  Age: 62 Year
  Sex: Female
  Weight: 53 kg

DRUGS (4)
  1. AZULFIDINE EN-TABS [Suspect]
     Indication: RHEUMATOID ARTHRITIS
     Dosage: 1000 MG/DAY, ORAL
     Route: 048
     Dates: start: 20040424, end: 20040509
  2. JUVELA [Concomitant]
  3. MARZULENE S (SODIUM GUALENATE) [Concomitant]
  4. MOBIC [Concomitant]

REACTIONS (12)
  - CHILLS [None]
  - COUGH [None]
  - DIARRHOEA [None]
  - DYSPHAGIA [None]
  - EXANTHEM [None]
  - MUCOUS MEMBRANE DISORDER [None]
  - PHARYNGOLARYNGEAL PAIN [None]
  - PYREXIA [None]
  - RASH [None]
  - RHINALGIA [None]
  - STOMATITIS [None]
  - VOMITING [None]
